FAERS Safety Report 16654895 (Version 3)
Quarter: 2019Q4

REPORT INFORMATION
  Report Type: Spontaneous
  Country: US (occurrence: US)
  Receive Date: 20190801
  Receipt Date: 20191004
  Transmission Date: 20200122
  Serious: No
  Sender: FDA-Public Use
  Company Number: US-BRISTOL-MYERS SQUIBB COMPANY-BMS-2019-074939

PATIENT
  Age: 69 Year
  Sex: Female

DRUGS (1)
  1. ORENCIA [Suspect]
     Active Substance: ABATACEPT
     Indication: RHEUMATOID ARTHRITIS
     Dosage: 6-7
     Route: 042

REACTIONS (7)
  - Cough [Not Recovered/Not Resolved]
  - Peripheral swelling [Unknown]
  - Mood swings [Unknown]
  - Depression [Unknown]
  - Arthritis [Unknown]
  - Arthralgia [Unknown]
  - Stomatitis [Unknown]
